FAERS Safety Report 20690214 (Version 1)
Quarter: 2022Q2

REPORT INFORMATION
  Report Type: Spontaneous
  Country: US (occurrence: None)
  Receive Date: 20220407
  Receipt Date: 20220407
  Transmission Date: 20220721
  Serious: Yes (unspecified)
  Sender: FDA-Public Use
  Company Number: None

PATIENT
  Age: 73 Year
  Sex: Male
  Weight: 97.52 kg

DRUGS (2)
  1. FLUOROURACIL CREAM [Suspect]
     Active Substance: FLUOROURACIL
     Indication: Actinic keratosis
     Dosage: OTHER STRENGTH :  USP 5 %;?FREQUENCY : TWICE A DAY;?
     Route: 061
     Dates: start: 20210502, end: 20210524
  2. FLUOCINOLONE ACETONIDE [Suspect]
     Active Substance: FLUOCINOLONE ACETONIDE
     Dosage: OTHER STRENGTH : USP 0.025 % ;?

REACTIONS (9)
  - Hypersensitivity [None]
  - Skin exfoliation [None]
  - Wheezing [None]
  - Chest discomfort [None]
  - Throat tightness [None]
  - Dyspnoea [None]
  - Speech disorder [None]
  - Dysphonia [None]
  - Therapy cessation [None]

NARRATIVE: CASE EVENT DATE: 20210512
